FAERS Safety Report 7027771-2 (Version None)
Quarter: 2010Q3

REPORT INFORMATION
  Report Type: 
  Country: None (occurrence: None)
  Receive Date: 20100830
  Receipt Date: 20100816
  Transmission Date: 20110219
  Serious: Yes (Life-Threatening, Hospitalization, Other)
  Sender: FDA-Public Use
  Company Number: THYM-1001156

PATIENT
  Age: 69 Year
  Sex: Male
  Weight: 94 kg

DRUGS (20)
  1. THYMOGLOBULIN [Suspect]
     Indication: RENAL TRANSPLANT
     Dosage: 135 MG, INTRAVENOUS
     Route: 042
     Dates: start: 20081229, end: 20090101
  2. PROGRAF [Concomitant]
  3. CELLCEPT [Concomitant]
  4. DECALFIN H (DECALFIN H) [Concomitant]
  5. PREDNISONE TAB [Concomitant]
  6. AMLODIPINE [Concomitant]
  7. BISOPROLOL FUMARATE [Concomitant]
  8. LEVOTHYROXINE SODIUM [Concomitant]
  9. PANTOPRAZOLE SODIUM [Concomitant]
  10. BICANORM (SODIUM CARBONATE ANHYDROUS) [Concomitant]
  11. TORSEMIDE [Concomitant]
  12. COTRIM FORTE EU RHO (SULFAMETHOXAZOLE, TRIMETHOPRIM) [Concomitant]
  13. VALCYTE [Concomitant]
  14. CALCIMAGON-D 3 (CALCIUM CARBONATE, COLECALCIFEROL) [Concomitant]
  15. CYNT (MOXONIDINE) [Concomitant]
  16. RAMIPRIL [Concomitant]
  17. METOCLOPRAMIDE [Concomitant]
  18. ESPUMISAN (DIMETICONE) [Concomitant]
  19. AUGMENTAN (AMOXICILLIN SODIUM, CLAVULANATE POTASSIUM) [Concomitant]
  20. ACTRAPID (INSULIN HUMAN) [Concomitant]

REACTIONS (19)
  - ACUTE ABDOMEN [None]
  - DIVERTICULITIS [None]
  - DYSPHAGIA [None]
  - IMPAIRED HEALING [None]
  - LARGE INTESTINE PERFORATION [None]
  - NAUSEA [None]
  - NEUROENDOCRINE TUMOUR [None]
  - PERITONITIS [None]
  - POLYNEUROPATHY [None]
  - POST PROCEDURAL COMPLICATION [None]
  - PROCALCITONIN INCREASED [None]
  - PULMONARY HAEMORRHAGE [None]
  - PULMONARY MASS [None]
  - RESPIRATORY FAILURE [None]
  - SEPSIS [None]
  - URINARY TRACT INFECTION ENTEROCOCCAL [None]
  - URINARY TRACT INFECTION PSEUDOMONAL [None]
  - VERTIGO [None]
  - WEANING FAILURE [None]
